FAERS Safety Report 20383229 (Version 11)
Quarter: 2024Q2

REPORT INFORMATION
  Report Type: Spontaneous
  Country: US (occurrence: US)
  Receive Date: 20220127
  Receipt Date: 20240429
  Transmission Date: 20240716
  Serious: No
  Sender: FDA-Public Use
  Company Number: US-PFIZER INC-202200073170

PATIENT
  Age: 88 Year
  Sex: Female
  Weight: 54.43 kg

DRUGS (2)
  1. ESTRING [Suspect]
     Active Substance: ESTRADIOL
     Indication: Urinary tract infection
     Dosage: 2 MG, EVERY 3 MONTHS
     Dates: start: 2018
  2. ESTRING [Suspect]
     Active Substance: ESTRADIOL
     Dosage: UNK

REACTIONS (3)
  - Intentional device use issue [Unknown]
  - Drug effective for unapproved indication [Unknown]
  - Off label use [Unknown]
